FAERS Safety Report 7522344-7 (Version None)
Quarter: 2011Q2

REPORT INFORMATION
  Report Type: 
  Country: None (occurrence: None)
  Receive Date: 20110603
  Receipt Date: 20110601
  Transmission Date: 20111010
  Serious: Yes (Death)
  Sender: FDA-Public Use
  Company Number: PHHY2011SA47173

PATIENT
  Age: 68 Year
  Sex: Female

DRUGS (1)
  1. VOLTAREN [Suspect]
     Indication: ABDOMINAL PAIN
     Dosage: 75 MG, BID

REACTIONS (4)
  - GENERALISED OEDEMA [None]
  - OVERDOSE [None]
  - SKIN DISCOLOURATION [None]
  - CARDIAC ARREST [None]
